FAERS Safety Report 21621019 (Version 1)
Quarter: 2022Q4

REPORT INFORMATION
  Report Type: Spontaneous
  Country: US (occurrence: None)
  Receive Date: 20221121
  Receipt Date: 20221121
  Transmission Date: 20230113
  Serious: Yes (Hospitalization, Other)
  Sender: FDA-Public Use
  Company Number: US-MICRO LABS LIMITED-ML2022-05671

PATIENT
  Age: 19 Year
  Sex: Male

DRUGS (2)
  1. DIPHENHYDRAMINE HYDROCHLORIDE [Suspect]
     Active Substance: DIPHENHYDRAMINE HYDROCHLORIDE
  2. ETHYLENE GLYCOL [Suspect]
     Active Substance: ETHYLENE GLYCOL

REACTIONS (3)
  - Metabolic acidosis [Recovered/Resolved]
  - Impaired gastric emptying [Unknown]
  - Intentional overdose [Unknown]
